FAERS Safety Report 5474814-3 (Version None)
Quarter: 2007Q3

REPORT INFORMATION
  Report Type: 
  Country: None (occurrence: None)
  Receive Date: 20070927
  Receipt Date: 20070927
  Transmission Date: 20080115
  Serious: Yes (Disabling)
  Sender: FDA-Public Use
  Company Number: None

PATIENT
  Age: 49 Year
  Sex: Female
  Weight: 74 kg

DRUGS (1)
  1. POLYETHYLENE GLYCOL 3350 [Suspect]
     Indication: COLONOSCOPY
     Dosage: 3,000 ML  ONE TIME  PO
     Route: 048
     Dates: start: 20070905, end: 20070905

REACTIONS (1)
  - BLOOD POTASSIUM INCREASED [None]
